FAERS Safety Report 21837220 (Version 2)
Quarter: 2023Q1

REPORT INFORMATION
  Report Type: Spontaneous
  Country: US (occurrence: US)
  Receive Date: 20230109
  Receipt Date: 20230321
  Transmission Date: 20230417
  Serious: No
  Sender: FDA-Public Use
  Company Number: US-PHARMING-PHAUS2023000028

PATIENT

DRUGS (2)
  1. RUCONEST [Suspect]
     Active Substance: HUMAN C1-ESTERASE INHIBITOR
     Indication: Hereditary angioedema
     Dosage: 4200 IU, TWICE A WEEK
     Route: 042
     Dates: start: 20200622
  2. RUCONEST [Suspect]
     Active Substance: HUMAN C1-ESTERASE INHIBITOR
     Indication: Hereditary angioedema
     Dosage: 4200 IU; TWICE WEEKLY AND AS NEEDED OVER FIVE MINUTES
     Route: 042
     Dates: start: 20190604

REACTIONS (2)
  - Weight fluctuation [Unknown]
  - Intentional product use issue [Unknown]
